FAERS Safety Report 19230200 (Version 1)
Quarter: 2021Q2

REPORT INFORMATION
  Report Type: Spontaneous
  Country: US (occurrence: US)
  Receive Date: 20210506
  Receipt Date: 20210506
  Transmission Date: 20210717
  Serious: No
  Sender: FDA-Public Use
  Company Number: US-SA-2021SA148039

PATIENT
  Sex: Female

DRUGS (2)
  1. DUPIXENT [Suspect]
     Active Substance: DUPILUMAB
     Indication: MOVEMENT DISORDER
     Dosage: 300 MG, QOW
     Route: 058
     Dates: start: 201212
  2. DUPIXENT [Suspect]
     Active Substance: DUPILUMAB
     Indication: EXTRAPYRAMIDAL DISORDER

REACTIONS (2)
  - Product use in unapproved indication [Unknown]
  - Eyelid infection [Unknown]
